FAERS Safety Report 8222977-9 (Version None)
Quarter: 2012Q1

REPORT INFORMATION
  Report Type: 
  Country: None (occurrence: None)
  Receive Date: 20120320
  Receipt Date: 20120306
  Transmission Date: 20120608
  Serious: Yes (Hospitalization, Other)
  Sender: FDA-Public Use
  Company Number: ES-BIOGENIDEC-2010BI025733

PATIENT
  Age: 41 Year
  Sex: Male

DRUGS (1)
  1. TYSABRI [Suspect]
     Indication: MULTIPLE SCLEROSIS
     Route: 042
     Dates: start: 20081013, end: 20100726

REACTIONS (5)
  - MULTIPLE SCLEROSIS RELAPSE [None]
  - MICTURITION URGENCY [None]
  - INCONTINENCE [None]
  - PROGRESSIVE MULTIFOCAL LEUKOENCEPHALOPATHY [None]
  - IMMUNE RECONSTITUTION SYNDROME [None]
